FAERS Safety Report 14436562 (Version 1)
Quarter: 2018Q1

REPORT INFORMATION
  Report Type: Spontaneous
  Country: US (occurrence: US)
  Receive Date: 20180125
  Receipt Date: 20180125
  Transmission Date: 20180509
  Serious: No
  Sender: FDA-Public Use
  Company Number: US-UNITED THERAPEUTICS-UNT-2017-006621

PATIENT
  Age: 70 Year
  Sex: Female
  Weight: 103.86 kg

DRUGS (2)
  1. TYVASO [Suspect]
     Active Substance: TREPROSTINIL
     Indication: PULMONARY HYPERTENSION
     Dosage: 18-54 MICROGRAMS, QID
     Dates: start: 20170217
  2. TYVASO [Suspect]
     Active Substance: TREPROSTINIL
     Dosage: UNK

REACTIONS (6)
  - Sleep talking [Unknown]
  - Fatigue [Not Recovered/Not Resolved]
  - Somnolence [Unknown]
  - Drug dose omission [Unknown]
  - Mental impairment [Unknown]
  - Speech disorder [Unknown]

NARRATIVE: CASE EVENT DATE: 20170516
